FAERS Safety Report 9319532 (Version 1)
Quarter: 2013Q2

REPORT INFORMATION
  Report Type: Spontaneous
  Country: US (occurrence: US)
  Receive Date: 20130530
  Receipt Date: 20130530
  Transmission Date: 20140414
  Serious: Yes (Hospitalization)
  Sender: FDA-Public Use
  Company Number: US-GLAXOSMITHKLINE-A0998844A

PATIENT
  Age: 46 Year
  Sex: Female

DRUGS (1)
  1. FLOLAN [Suspect]
     Indication: PULMONARY ARTERIAL HYPERTENSION
     Dosage: 31NGKM CONTINUOUS
     Route: 042
     Dates: start: 20090806

REACTIONS (4)
  - Pain in jaw [Unknown]
  - Musculoskeletal pain [Unknown]
  - Catheter site pruritus [Unknown]
  - Device breakage [Unknown]
